FAERS Safety Report 13358314 (Version 1)
Quarter: 2017Q1

REPORT INFORMATION
  Report Type: Spontaneous
  Country: US (occurrence: US)
  Receive Date: 20170321
  Receipt Date: 20170321
  Transmission Date: 20170429
  Serious: Yes (Disabling)
  Sender: FDA-Public Use
  Company Number: None

PATIENT
  Age: 64 Year
  Sex: Female
  Weight: 101.2 kg

DRUGS (15)
  1. BYSTOLIC [Concomitant]
     Active Substance: NEBIVOLOL HYDROCHLORIDE
  2. OLMESARTAN [Concomitant]
     Active Substance: OLMESARTAN
  3. MULTIVITAMIN [Concomitant]
     Active Substance: VITAMINS
  4. VITAMIN D [Concomitant]
     Active Substance: CHOLECALCIFEROL
  5. ACTEMRA [Suspect]
     Active Substance: TOCILIZUMAB
     Indication: RHEUMATOID ARTHRITIS
     Dosage: ?          OTHER FREQUENCY:ONCE A MONTH;?
     Route: 042
     Dates: start: 20161115, end: 20170207
  6. METHOTREXATE. [Concomitant]
     Active Substance: METHOTREXATE
  7. MOBIC [Concomitant]
     Active Substance: MELOXICAM
  8. AMLODIPNE [Concomitant]
  9. PRILOSEC [Concomitant]
     Active Substance: OMEPRAZOLE MAGNESIUM
  10. CHOLESTYRAMINE. [Concomitant]
     Active Substance: CHOLESTYRAMINE
  11. PROLIA [Concomitant]
     Active Substance: DENOSUMAB
  12. FOLIC ACID. [Concomitant]
     Active Substance: FOLIC ACID
  13. VYTORIN [Concomitant]
     Active Substance: EZETIMIBE\SIMVASTATIN
  14. PROZAC [Concomitant]
     Active Substance: FLUOXETINE HYDROCHLORIDE
  15. CALCIUM WITH D [Concomitant]
     Active Substance: CALCIUM\VITAMIN D

REACTIONS (5)
  - Mouth ulceration [None]
  - Diarrhoea [None]
  - Abdominal pain upper [None]
  - Dehydration [None]
  - Colitis [None]

NARRATIVE: CASE EVENT DATE: 20170219
